FAERS Safety Report 17692813 (Version 1)
Quarter: 2020Q2

REPORT INFORMATION
  Report Type: Spontaneous
  Country: CN (occurrence: CN)
  Receive Date: 20200422
  Receipt Date: 20200422
  Transmission Date: 20200714
  Serious: Yes (Other)
  Sender: FDA-Public Use
  Company Number: CN-ROCHE-2585580

PATIENT
  Age: 51 Year
  Sex: Female

DRUGS (6)
  1. PACLITAXEL LIPOSOME [Concomitant]
     Active Substance: PACLITAXEL
     Dosage: TREATMENT DATES (12/JAN/2020, 14/FEB/2020 AND 24/MAR/2020)
     Route: 041
     Dates: start: 20191218
  2. HERCEPTIN [Suspect]
     Active Substance: TRASTUZUMAB
     Indication: ADENOCARCINOMA
     Dosage: DAY 0
     Route: 041
     Dates: start: 20191023
  3. HERCEPTIN [Suspect]
     Active Substance: TRASTUZUMAB
     Dosage: DAY 1
     Route: 041
     Dates: start: 20191113
  4. HERCEPTIN [Suspect]
     Active Substance: TRASTUZUMAB
     Dosage: TREATMENT DATES (12/JAN/2020, 14/FEB/2020 AND 24/MAR/2020)
     Route: 041
     Dates: start: 20191218
  5. PACLITAXEL LIPOSOME [Concomitant]
     Active Substance: PACLITAXEL
     Dosage: DAY 1
     Route: 041
     Dates: start: 20191113
  6. PACLITAXEL LIPOSOME [Concomitant]
     Active Substance: PACLITAXEL
     Indication: ADENOCARCINOMA
     Dosage: DAY 1
     Route: 041
     Dates: start: 20191023

REACTIONS (6)
  - Bone marrow failure [Unknown]
  - Intentional product use issue [Unknown]
  - Hepatic cyst [Unknown]
  - Nausea [Unknown]
  - Off label use [Unknown]
  - Gastrointestinal disorder [Unknown]
